FAERS Safety Report 5510581-2 (Version None)
Quarter: 2007Q4

REPORT INFORMATION
  Report Type: 
  Country: None (occurrence: None)
  Receive Date: 20071108
  Receipt Date: 20071101
  Transmission Date: 20080405
  Serious: Yes (Congenital Anomaly)
  Sender: FDA-Public Use
  Company Number: JP-ELI_LILLY_AND_COMPANY-JP200711001044

PATIENT

DRUGS (1)
  1. HUMALOG [Suspect]
     Indication: IMPAIRED INSULIN SECRETION
     Dosage: UNK, UNK
     Route: 064
     Dates: start: 20050601

REACTIONS (2)
  - DRUG EXPOSURE DURING PREGNANCY [None]
  - HYPOSPADIAS [None]
